FAERS Safety Report 7824053-3 (Version None)
Quarter: 2011Q4

REPORT INFORMATION
  Report Type: 
  Country: None (occurrence: None)
  Receive Date: 20111019
  Receipt Date: 20111012
  Transmission Date: 20120403
  Serious: Yes (Hospitalization, Other)
  Sender: FDA-Public Use
  Company Number: AR-SANOFI-AVENTIS-2011SA044208

PATIENT
  Age: 66 Year
  Sex: Female
  Weight: 100 kg

DRUGS (12)
  1. CARVEDILOL [Concomitant]
  2. ASPIRIN [Concomitant]
  3. CLOPIDOGREL [Concomitant]
  4. SIMVASTATIN [Concomitant]
  5. SPIRONOLACTONE [Concomitant]
  6. LEVOTHYROXINE SODIUM [Concomitant]
  7. FUROSEMIDE [Concomitant]
  8. INSULIN [Concomitant]
     Dosage: 40 U MORNING, 30 U NIGHT.
  9. ENALAPRIL MALEATE [Concomitant]
  10. DIGOXIN [Concomitant]
     Dates: end: 20110322
  11. DRONEDARONE HCL [Suspect]
     Indication: ATRIAL FIBRILLATION
     Route: 048
     Dates: start: 20110322
  12. SINTROM [Concomitant]

REACTIONS (4)
  - CARDIAC FAILURE [None]
  - BRADYCARDIA [None]
  - RENAL FAILURE ACUTE [None]
  - CARDIAC ARREST [None]
